FAERS Safety Report 10032155 (Version 2)
Quarter: 2014Q2

REPORT INFORMATION
  Report Type: Spontaneous
  Country: FR (occurrence: FR)
  Receive Date: 20140324
  Receipt Date: 20140418
  Transmission Date: 20141212
  Serious: Yes (Hospitalization)
  Sender: FDA-Public Use
  Company Number: FR-SA-2014SA031550

PATIENT
  Age: 60 Year
  Sex: Male
  Weight: 73 kg

DRUGS (14)
  1. LOVENOX [Suspect]
     Indication: PRODUCT USED FOR UNKNOWN INDICATION
     Dosage: CURATIVE DAILY DOSE NOS
     Route: 065
     Dates: start: 20140214, end: 20140221
  2. PREVISCAN [Suspect]
     Indication: PRODUCT USED FOR UNKNOWN INDICATION
     Dosage: EVENING
     Route: 065
     Dates: start: 20140218, end: 20140220
  3. PREVISCAN [Suspect]
     Indication: PRODUCT USED FOR UNKNOWN INDICATION
     Dosage: EVENING
     Route: 065
     Dates: start: 20140221, end: 20140222
  4. HEPARIN (SALT NOT SPECIFIED) [Concomitant]
     Dates: start: 20140222
  5. METFORMIN [Concomitant]
     Indication: TYPE 2 DIABETES MELLITUS
     Dosage: STRENGTH: 1000 (UNIT NOT REPORTED)
  6. KARDEGIC [Concomitant]
     Dosage: STRENGTH: 75 MG
  7. INEXIUM [Concomitant]
     Dosage: STRENGTH: 40 MG
  8. LASILIX [Concomitant]
     Dosage: STRENGTH: 20 MG
  9. LEVOTHYROX [Concomitant]
     Dosage: STRENGTH: 0.025 (UNIT NOT REPORTED)
  10. VITAMIN B12 [Concomitant]
  11. FOLIC ACID [Concomitant]
  12. SOLUPRED [Concomitant]
  13. TIORFAN [Concomitant]
  14. MERONEM [Concomitant]
     Dates: start: 20140214

REACTIONS (9)
  - Renal failure acute [Recovering/Resolving]
  - Anuria [Unknown]
  - Blood creatinine increased [Recovering/Resolving]
  - Muscle haemorrhage [Recovering/Resolving]
  - Blood pressure decreased [Unknown]
  - Heart rate increased [Unknown]
  - Haemorrhagic anaemia [Not Recovered/Not Resolved]
  - International normalised ratio increased [Recovered/Resolved]
  - Asthenia [Unknown]
